FAERS Safety Report 4830842-X (Version None)
Quarter: 2005Q4

REPORT INFORMATION
  Report Type: 
  Country: None (occurrence: None)
  Receive Date: 20051117
  Receipt Date: 20050930
  Transmission Date: 20060501
  Serious: Yes (Hospitalization, Disabling)
  Sender: FDA-Public Use
  Company Number: US-MERCK-0510USA01965

PATIENT
  Age: 57 Year
  Sex: Female
  Weight: 82 kg

DRUGS (12)
  1. AUGMENTIN [Concomitant]
     Route: 065
  2. CYCLOBENZAPRINE HYDROCHLORIDE [Concomitant]
     Route: 065
  3. CHLORPHENIRAMINE MALEATE AND PHENYLEPHRINE HYDROCHLORIDE AND PHENYLPRO [Concomitant]
     Route: 065
  4. HYDROCODONE BITARTRATE [Concomitant]
     Route: 065
  5. METHYLDOPA [Concomitant]
     Route: 065
  6. NEXIUM [Concomitant]
     Route: 065
  7. NORVASC [Concomitant]
     Route: 065
  8. VIOXX [Suspect]
     Indication: OSTEOARTHRITIS
     Route: 048
     Dates: start: 19990806, end: 20030327
  9. ACETAMINOPHEN AND CODEINE PHOSPHATE [Concomitant]
     Route: 065
  10. PREMARIN [Concomitant]
     Route: 065
  11. ACETAMINOPHEN AND PROPOXYPHENE NAPSYLATE [Concomitant]
     Route: 065
  12. ZOCOR [Concomitant]
     Route: 048

REACTIONS (6)
  - CEREBRAL THROMBOSIS [None]
  - CEREBROVASCULAR ACCIDENT [None]
  - DIABETES MELLITUS [None]
  - ISCHAEMIC STROKE [None]
  - MIGRAINE [None]
  - NEUROPATHY [None]
